FAERS Safety Report 4687672-1 (Version None)
Quarter: 2005Q2

REPORT INFORMATION
  Report Type: 
  Country: None (occurrence: None)
  Receive Date: 20050610
  Receipt Date: 20050530
  Transmission Date: 20051028
  Serious: Yes (Hospitalization)
  Sender: FDA-Public Use
  Company Number: FR-JNJFOC-20050600081

PATIENT
  Age: 54 Year
  Sex: Male
  Weight: 90 kg

DRUGS (6)
  1. HALOPERIDOL DECANOATE [Suspect]
     Route: 030
  2. GLUCOPHAGE [Concomitant]
  3. ZYLORIC [Concomitant]
  4. TRIATEC [Concomitant]
  5. MEDIATENSYL [Concomitant]
  6. GLUCOR [Concomitant]

REACTIONS (7)
  - CONFUSIONAL STATE [None]
  - DRUG TOXICITY [None]
  - FALL [None]
  - HYPERTENSION [None]
  - LEUKOCYTOSIS [None]
  - ORTHOSTATIC HYPOTENSION [None]
  - SOMNOLENCE [None]
